FAERS Safety Report 13568743 (Version 1)
Quarter: 2017Q2

REPORT INFORMATION
  Report Type: Spontaneous
  Country: US (occurrence: US)
  Receive Date: 20170522
  Receipt Date: 20170522
  Transmission Date: 20170830
  Serious: No
  Sender: FDA-Public Use
  Company Number: US-COLLEGIUM PHARMACEUTICAL, INC.-2017CGM00022

PATIENT
  Age: 55 Year

DRUGS (9)
  1. XTAMPZA ER [Suspect]
     Active Substance: OXYCODONE
     Indication: LUMBAR SPINAL STENOSIS
  2. XTAMPZA ER [Suspect]
     Active Substance: OXYCODONE
     Indication: PAIN
     Dosage: UNK
     Dates: end: 20170130
  3. XTAMPZA ER [Suspect]
     Active Substance: OXYCODONE
     Indication: POST LAMINECTOMY SYNDROME
  4. MULTIVITAMIN [Concomitant]
     Active Substance: VITAMINS
  5. XTAMPZA ER [Suspect]
     Active Substance: OXYCODONE
     Indication: INTERVERTEBRAL DISC DEGENERATION
  6. METFORMIN [Concomitant]
     Active Substance: METFORMIN HYDROCHLORIDE
  7. MIRALAX [Concomitant]
     Active Substance: POLYETHYLENE GLYCOL 3350
  8. VITAMIN D3 [Concomitant]
     Active Substance: CHOLECALCIFEROL
  9. XTAMPZA ER [Suspect]
     Active Substance: OXYCODONE
     Indication: OSTEOARTHRITIS

REACTIONS (4)
  - Vomiting [Recovered/Resolved]
  - Paranoia [Recovered/Resolved]
  - Nausea [Recovered/Resolved]
  - Agitation [Recovered/Resolved]

NARRATIVE: CASE EVENT DATE: 20170123
